FAERS Safety Report 9495243 (Version 1)
Quarter: 2013Q3

REPORT INFORMATION
  Report Type: Spontaneous
  Country: US (occurrence: US)
  Receive Date: 20130903
  Receipt Date: 20130903
  Transmission Date: 20140515
  Serious: No
  Sender: FDA-Public Use
  Company Number: US-BAYER-2013-106392

PATIENT
  Age: 76 Year
  Sex: Female
  Weight: 70.3 kg

DRUGS (6)
  1. ALEVE CAPLET [Suspect]
     Indication: ARTHRITIS
     Dosage: 1 DF, BID
     Route: 048
     Dates: start: 20130730, end: 20130826
  2. BENAZEPRIL [Concomitant]
  3. AMLODIPINE [Concomitant]
  4. PRAVASTATIN [Concomitant]
  5. CALCIUM +VIT D [Concomitant]
  6. GLUCOSAMINE [Concomitant]

REACTIONS (2)
  - Blood pressure increased [Recovered/Resolved]
  - Incorrect drug administration duration [None]
